FAERS Safety Report 14511587 (Version 1)
Quarter: 2018Q1

REPORT INFORMATION
  Report Type: Spontaneous
  Country: US (occurrence: US)
  Receive Date: 20180209
  Receipt Date: 20180209
  Transmission Date: 20180509
  Serious: No
  Sender: FDA-Public Use
  Company Number: US-ENDO PHARMACEUTICALS INC-2017-005314

PATIENT
  Sex: Male

DRUGS (1)
  1. TESTOSTERONE GEL [Suspect]
     Active Substance: TESTOSTERONE
     Indication: BLOOD TESTOSTERONE DECREASED
     Dosage: 70 MG, 7 PUMPS PER DAY
     Route: 061

REACTIONS (4)
  - Incorrect dose administered [Unknown]
  - Blood testosterone decreased [Not Recovered/Not Resolved]
  - Drug dose omission [None]
  - Product quality issue [Unknown]
